FAERS Safety Report 9832630 (Version 2)
Quarter: 2014Q2

REPORT INFORMATION
  Report Type: Spontaneous
  Country: US (occurrence: US)
  Receive Date: 20140121
  Receipt Date: 20140410
  Transmission Date: 20141212
  Serious: Yes (Death)
  Sender: FDA-Public Use
  Company Number: US-DENDREON CORPORATION-2014PROUSA03440

PATIENT
  Age: 65 Year
  Sex: Male
  Weight: 72.56 kg

DRUGS (5)
  1. PROVENGE [Suspect]
     Indication: PROSTATE CANCER METASTATIC
     Dosage: 250 ML, SINGLE
     Route: 042
     Dates: start: 20120323, end: 20120323
  2. PROVENGE [Suspect]
     Dosage: 250 ML, SINGLE
     Route: 042
     Dates: start: 20120405, end: 20120405
  3. PROVENGE [Suspect]
     Dosage: 250 ML, SINGLE
     Route: 042
     Dates: start: 20120420, end: 20120420
  4. OXYCODONE [Concomitant]
     Indication: PAIN
     Dosage: 15 MG, EVERY 2 PRN
  5. OXYCONTIN [Concomitant]
     Indication: PAIN
     Dosage: 40 MG, TID

REACTIONS (1)
  - Prostate cancer [Fatal]
